FAERS Safety Report 24844383 (Version 1)
Quarter: 2025Q1

REPORT INFORMATION
  Report Type: Spontaneous
  Country: US (occurrence: None)
  Receive Date: 20250114
  Receipt Date: 20250114
  Transmission Date: 20250409
  Serious: No
  Sender: FDA-CTU
  Company Number: None

PATIENT
  Age: 65 Year
  Sex: Male
  Weight: 143 kg

DRUGS (1)
  1. TIRZEPATIDE [Suspect]
     Active Substance: TIRZEPATIDE
     Indication: Obesity
     Dosage: OTHER FREQUENCY : QWEEK;?
     Route: 058

REACTIONS (4)
  - Abdominal pain [None]
  - Constipation [None]
  - Drug intolerance [None]
  - Gastrointestinal disorder [None]

NARRATIVE: CASE EVENT DATE: 20240906
